FAERS Safety Report 22630250 (Version 1)
Quarter: 2023Q2

REPORT INFORMATION
  Report Type: Spontaneous
  Country: US (occurrence: None)
  Receive Date: 20230619
  Receipt Date: 20230619
  Transmission Date: 20230721
  Serious: Yes (Hospitalization)
  Sender: FDA-Public Use
  Company Number: None

PATIENT
  Sex: Female

DRUGS (35)
  1. TEMOZOLOMIDE [Suspect]
     Active Substance: TEMOZOLOMIDE
     Indication: Brain neoplasm malignant
     Dosage: FREQUENCY : DAILY;?
     Route: 048
  2. ACETAMINOPHEN [Concomitant]
     Active Substance: ACETAMINOPHEN
  3. ALBUTEROL [Concomitant]
     Active Substance: ALBUTEROL
  4. ALOE VERA LEAF [Concomitant]
     Active Substance: ALOE VERA LEAF
  5. ANTIVERT [Concomitant]
     Active Substance: MECLIZINE HYDROCHLORIDE
  6. AZITHROMYCIN [Concomitant]
     Active Substance: AZITHROMYCIN
  7. BENGAY ARTHRITIS PAIN RELIEVING [Concomitant]
     Active Substance: MENTHOL\METHYL SALICYLATE
  8. CHANTIX [Concomitant]
     Active Substance: VARENICLINE TARTRATE
  9. CLARITIN [Concomitant]
     Active Substance: LORATADINE
  10. CLONAZEPAM [Concomitant]
     Active Substance: CLONAZEPAM
  11. DITROPAN [Concomitant]
     Active Substance: OXYBUTYNIN CHLORIDE
  12. DOCUSATE [Concomitant]
     Active Substance: DOCUSATE
  13. EAR WAX REMOVAL [Concomitant]
     Active Substance: CARBAMIDE PEROXIDE
  14. FLONASE [Concomitant]
     Active Substance: FLUTICASONE PROPIONATE
  15. GERI DRY [Concomitant]
  16. IPRATROPIUM [Concomitant]
     Active Substance: IPRATROPIUM
  17. KEPPRA [Concomitant]
     Active Substance: LEVETIRACETAM
  18. LEXAPRO [Concomitant]
     Active Substance: ESCITALOPRAM OXALATE
  19. LORAZEPAM [Concomitant]
     Active Substance: LORAZEPAM
  20. MOBIC [Concomitant]
     Active Substance: MELOXICAM
  21. MORPHINE [Concomitant]
     Active Substance: MORPHINE
  22. VITAMINS [Concomitant]
     Active Substance: VITAMINS
  23. NALOXONE [Concomitant]
     Active Substance: NALOXONE
  24. NEXIUM [Concomitant]
     Active Substance: ESOMEPRAZOLE MAGNESIUM
  25. PERFOROMIST [Concomitant]
     Active Substance: FORMOTEROL FUMARATE DIHYDRATE
  26. PSEUDOEPHEDRINE [Concomitant]
     Active Substance: PSEUDOEPHEDRINE
  27. DIETARY SUPPLEMENT\HERBALS [Concomitant]
     Active Substance: DIETARY SUPPLEMENT\HERBALS
  28. SEROQUEL [Concomitant]
     Active Substance: QUETIAPINE FUMARATE
  29. SYMBICORT [Concomitant]
     Active Substance: BUDESONIDE\FORMOTEROL FUMARATE DIHYDRATE
  30. TESSALON PEARLS [Concomitant]
  31. TIZANIDINE [Concomitant]
     Active Substance: TIZANIDINE
  32. TRAZODONE [Concomitant]
     Active Substance: TRAZODONE HYDROCHLORIDE
  33. VITAMIN B12 [Concomitant]
     Active Substance: CYANOCOBALAMIN
  34. VOLTAREN [Concomitant]
     Active Substance: DICLOFENAC SODIUM
  35. ZOVIRAX [Concomitant]
     Active Substance: ACYCLOVIR

REACTIONS (1)
  - Seizure [None]
